FAERS Safety Report 7554135-5 (Version None)
Quarter: 2011Q2

REPORT INFORMATION
  Report Type: 
  Country: None (occurrence: None)
  Receive Date: 20110617
  Receipt Date: 20110602
  Transmission Date: 20111010
  Serious: Yes (Hospitalization)
  Sender: FDA-Public Use
  Company Number: CA-JNJFOC-20100706480

PATIENT
  Sex: Male
  Weight: 48 kg

DRUGS (3)
  1. IMURAN [Concomitant]
     Route: 048
  2. REMICADE [Suspect]
     Route: 042
     Dates: start: 20100101
  3. REMICADE [Suspect]
     Indication: CROHN'S DISEASE
     Route: 042
     Dates: start: 20080317

REACTIONS (1)
  - ABDOMINAL PAIN [None]
